FAERS Safety Report 15811231 (Version 2)
Quarter: 2019Q1

REPORT INFORMATION
  Report Type: Spontaneous
  Country: RU (occurrence: RU)
  Receive Date: 20190111
  Receipt Date: 20190131
  Transmission Date: 20190417
  Serious: Yes (Hospitalization)
  Sender: FDA-Public Use
  Company Number: RU-TEVA-2019-RU-997258

PATIENT
  Age: 4 Year
  Sex: Female
  Weight: 69 kg

DRUGS (5)
  1. VINCRISTINE SULFATE 1MG/ML SOLUTION FOR INJECTION [Suspect]
     Active Substance: VINCRISTINE SULFATE
     Indication: CHEMOTHERAPY
     Dosage: 2 DOSAGE FORMS DAILY;
     Route: 042
     Dates: start: 20180910, end: 20180917
  2. DEXAMETHASONE. [Concomitant]
     Active Substance: DEXAMETHASONE
     Indication: ACUTE LYMPHOCYTIC LEUKAEMIA
     Route: 048
     Dates: start: 20180910, end: 20180923
  3. METHOTREXATE. [Concomitant]
     Active Substance: METHOTREXATE
     Indication: ACUTE LYMPHOCYTIC LEUKAEMIA
     Route: 042
     Dates: start: 20180723, end: 20180903
  4. L-ASPARAGINASE [Concomitant]
     Active Substance: ASPARAGINASE
     Indication: ACUTE LYMPHOCYTIC LEUKAEMIA
     Route: 042
     Dates: start: 20180723, end: 20180903
  5. BORTIZAR [Concomitant]
     Indication: ACUTE LYMPHOCYTIC LEUKAEMIA
     Route: 042
     Dates: start: 20180910, end: 20180923

REACTIONS (6)
  - Gait inability [Recovering/Resolving]
  - Paresis [Recovering/Resolving]
  - Dysstasia [Recovering/Resolving]
  - Polyneuropathy [Recovering/Resolving]
  - Paraparesis [Recovering/Resolving]
  - Toxic neuropathy [Recovering/Resolving]

NARRATIVE: CASE EVENT DATE: 20181003
